FAERS Safety Report 22776859 (Version 6)
Quarter: 2023Q4

REPORT INFORMATION
  Report Type: Spontaneous
  Country: US (occurrence: US)
  Receive Date: 20230802
  Receipt Date: 20231013
  Transmission Date: 20240110
  Serious: No
  Sender: FDA-Public Use
  Company Number: US-PFIZER INC-202300263014

PATIENT
  Age: 10 Year
  Sex: Male

DRUGS (3)
  1. GENOTROPIN [Suspect]
     Active Substance: SOMATROPIN
     Indication: Growth hormone deficiency
     Dosage: TAKES 1.4MG ONE NIGHT, 1.2MG, OTHER NIGHT
     Dates: start: 20230710
  2. GENOTROPIN [Suspect]
     Active Substance: SOMATROPIN
     Dosage: TAKES 1.4MG ONE NIGHT, 1.2MG, OTHER NIGHT
     Dates: start: 20230710
  3. GENOTROPIN [Suspect]
     Active Substance: SOMATROPIN
     Dosage: UNK, ALTERNATE DAY (ALTERNATE 1.2MG AND 1.4MG)
     Dates: start: 20230727

REACTIONS (6)
  - Wrong technique in device usage process [Unknown]
  - Device delivery system issue [Unknown]
  - Device leakage [Unknown]
  - Device malfunction [Unknown]
  - Device mechanical issue [Unknown]
  - Device breakage [Unknown]

NARRATIVE: CASE EVENT DATE: 20230727
